FAERS Safety Report 22148704 (Version 2)
Quarter: 2023Q2

REPORT INFORMATION
  Report Type: Spontaneous
  Country: JP (occurrence: JP)
  Receive Date: 20230328
  Receipt Date: 20230503
  Transmission Date: 20230721
  Serious: Yes (Death, Disabling, Other)
  Sender: FDA-Public Use
  Company Number: JP-MSD-M2022-41093

PATIENT
  Sex: Female
  Weight: 52 kg

DRUGS (9)
  1. KEYTRUDA [Suspect]
     Active Substance: PEMBROLIZUMAB
     Indication: Endometrial cancer stage IV
     Dosage: 200 MILLIGRAM, Q3W
     Route: 041
     Dates: start: 20191219, end: 20200928
  2. KEYTRUDA [Suspect]
     Active Substance: PEMBROLIZUMAB
     Dosage: 400 MILLIGRAM, EVERY 6 WEEKS
     Route: 041
     Dates: start: 20201019, end: 20220422
  3. PACLITAXEL [Suspect]
     Active Substance: PACLITAXEL
     Indication: Endometrial cancer stage IV
     Dosage: UNK
     Route: 065
     Dates: start: 20200730, end: 20200829
  4. CARBOPLATIN [Suspect]
     Active Substance: CARBOPLATIN
     Indication: Endometrial cancer stage IV
     Dosage: UNK
     Route: 065
     Dates: start: 20200730, end: 20200829
  5. ELDECALCITOL [Concomitant]
     Active Substance: ELDECALCITOL
     Indication: Hypocalcaemia
     Dosage: 0.75 MILLIGRAM, QD
     Route: 048
     Dates: start: 20200608, end: 20230318
  6. WARFARIN POTASSIUM [Concomitant]
     Active Substance: WARFARIN POTASSIUM
     Indication: Venous thrombosis
     Dosage: 0.25 MILLIGRAM, QD
     Route: 048
     Dates: start: 20200122, end: 20220421
  7. CALCIUM CARBONATE\CHOLECALCIFEROL\MAGNESIUM CARBONATE [Concomitant]
     Active Substance: CALCIUM CARBONATE\CHOLECALCIFEROL\MAGNESIUM CARBONATE
     Indication: Hypocalcaemia
     Dosage: 3T, QD
     Route: 048
     Dates: start: 20200103, end: 20220430
  8. LEVOTHYROXINE SODIUM [Concomitant]
     Active Substance: LEVOTHYROXINE SODIUM
     Indication: Hypothyroidism
     Dosage: 50 MILLIGRAM, QD
     Route: 048
     Dates: start: 20200106, end: 20230318
  9. VONOPRAZAN FUMARATE [Concomitant]
     Active Substance: VONOPRAZAN FUMARATE
     Indication: Gastric ulcer
     Dosage: 20 MILLIGRAM, QD
     Route: 048
     Dates: start: 20200218, end: 20230318

REACTIONS (7)
  - Renal failure [Fatal]
  - Malignant neoplasm progression [Unknown]
  - Septic shock [Unknown]
  - Adrenal insufficiency [Recovering/Resolving]
  - Hypopituitarism [Not Recovered/Not Resolved]
  - Blood albumin decreased [Recovering/Resolving]
  - Arthralgia [Unknown]

NARRATIVE: CASE EVENT DATE: 20200101
